FAERS Safety Report 5113573-0 (Version None)
Quarter: 2006Q3

REPORT INFORMATION
  Report Type: 
  Country: None (occurrence: None)
  Receive Date: 20060920
  Receipt Date: 20060907
  Transmission Date: 20061208
  Serious: Yes (Other)
  Sender: FDA-Public Use
  Company Number: 2006110873

PATIENT
  Age: 6 Year
  Sex: Female

DRUGS (1)
  1. SOMATROPIN [Suspect]
     Indication: GROWTH HORMONE DEFICIENCY
     Dosage: 25 MCG/KG/ (25 MCG/KG, DAILY)

REACTIONS (6)
  - ABDOMINAL PAIN [None]
  - BLOOD LACTATE DEHYDROGENASE INCREASED [None]
  - BLOOD PYRUVIC ACID INCREASED [None]
  - MITOCHONDRIAL CYTOPATHY [None]
  - PANCREATITIS ACUTE [None]
  - VOMITING [None]
